FAERS Safety Report 7048932-2 (Version None)
Quarter: 2010Q4

REPORT INFORMATION
  Report Type: 
  Country: None (occurrence: None)
  Receive Date: 20101018
  Receipt Date: 20101004
  Transmission Date: 20110411
  Serious: Yes (Hospitalization, Other)
  Sender: FDA-Public Use
  Company Number: PHHY2010GB18982

PATIENT
  Sex: Male

DRUGS (4)
  1. CLOZARIL [Suspect]
     Indication: SCHIZOPHRENIA
     Dosage: 400 MG, QD
     Dates: start: 19930215
  2. CLOZARIL [Suspect]
     Dosage: 350 MG, QD
  3. CLOZARIL [Suspect]
     Route: 048
     Dates: start: 19931020, end: 20101003
  4. CITALOPRAM HYDROBROMIDE [Concomitant]
     Indication: DEPRESSION
     Dosage: 20MG/DAY
     Route: 048
     Dates: start: 20100226

REACTIONS (3)
  - GRAND MAL CONVULSION [None]
  - MENTAL DISORDER [None]
  - TACHYCARDIA [None]
